FAERS Safety Report 16179049 (Version 1)
Quarter: 2019Q2

REPORT INFORMATION
  Report Type: Report from Study
  Country: US (occurrence: US)
  Receive Date: 20190410
  Receipt Date: 20190410
  Transmission Date: 20190711
  Serious: Yes (Other)
  Sender: FDA-Public Use
  Company Number: US-AMGEN-USASL2019039002

PATIENT
  Age: 61 Year
  Sex: Female

DRUGS (1)
  1. REPATHA [Suspect]
     Active Substance: EVOLOCUMAB
     Indication: BLOOD CHOLESTEROL INCREASED
     Dosage: 140 MILLIGRAM, Q2WK
     Route: 065

REACTIONS (6)
  - Urticaria [Unknown]
  - Dyspnoea [Unknown]
  - Influenza like illness [Unknown]
  - Nasopharyngitis [Unknown]
  - Mental impairment [Unknown]
  - Dysphagia [Unknown]

NARRATIVE: CASE EVENT DATE: 201903
